FAERS Safety Report 8393434-4 (Version None)
Quarter: 2012Q2

REPORT INFORMATION
  Report Type: 
  Country: None (occurrence: None)
  Receive Date: 20120529
  Receipt Date: 20120516
  Transmission Date: 20120825
  Serious: Yes (Hospitalization)
  Sender: FDA-Public Use
  Company Number: GB-B.I. PHARMACEUTICALS,INC./RIDGEFIELD-2012-UK-00661UK

PATIENT
  Sex: Female

DRUGS (2)
  1. TRAJENTA [Suspect]
     Indication: DIABETES MELLITUS
  2. CALCIUM CHANNEL BLOCKERS [Concomitant]

REACTIONS (2)
  - OEDEMA PERIPHERAL [None]
  - DYSPNOEA [None]
